FAERS Safety Report 8301071-2 (Version None)
Quarter: 2012Q2

REPORT INFORMATION
  Report Type: 
  Country: None (occurrence: None)
  Receive Date: 20120420
  Receipt Date: 20120412
  Transmission Date: 20120825
  Serious: Yes (Life-Threatening, Hospitalization, Other)
  Sender: FDA-Public Use
  Company Number: US-B.I. PHARMACEUTICALS,INC./RIDGEFIELD-2012-EU-02103GD

PATIENT
  Age: 70 Year
  Sex: Male
  Weight: 75 kg

DRUGS (9)
  1. CALCIUM CARBONATE [Concomitant]
  2. SIMVASTATIN [Concomitant]
  3. METOPROLOL TARTRATE [Concomitant]
  4. DRONEDARONE HYDROCHLORIDE [Suspect]
     Indication: ATRIAL FIBRILLATION
     Dosage: 800 MG
     Route: 048
  5. DABIGATRAN ETEXILATE [Suspect]
     Indication: ATRIAL FIBRILLATION
     Dosage: 300 MG
     Route: 048
  6. OMEPRAZOLE [Concomitant]
  7. MULTI-VITAMIN [Concomitant]
  8. CETIRIZINE [Concomitant]
  9. NABUMETONE [Concomitant]

REACTIONS (5)
  - DYSPNOEA [None]
  - CHEST PAIN [None]
  - DRUG INTERACTION [None]
  - COAGULOPATHY [None]
  - PERICARDIAL HAEMORRHAGE [None]
